FAERS Safety Report 6256803-4 (Version None)
Quarter: 2009Q3

REPORT INFORMATION
  Report Type: 
  Country: None (occurrence: None)
  Receive Date: 20090706
  Receipt Date: 20090623
  Transmission Date: 20100115
  Serious: Yes (Other)
  Sender: FDA-Public Use
  Company Number: PHHY2009DE17476

PATIENT
  Age: 85 Year
  Sex: Male

DRUGS (5)
  1. ZOMETA [Suspect]
     Indication: METASTASES TO BONE
     Dosage: 4 MG, UNK
     Route: 042
     Dates: start: 20061107, end: 20080604
  2. OLMESARTAN MEDOXOMIL AND HYDROCHLOROTHIZIDE [Concomitant]
     Indication: HYPERTENSION
     Dosage: 20 MG/ 25 MG DAILY
     Route: 048
     Dates: start: 20060101
  3. METOHEXAL [Concomitant]
     Indication: HYPERTENSION
     Dosage: 95 MG DAILY
     Route: 048
     Dates: start: 20060101
  4. AMLODIPINE [Concomitant]
     Indication: HYPERTENSION
     Dosage: 10 MG DAILY
     Route: 048
     Dates: start: 20060101
  5. SIMVAHEXAL [Concomitant]
     Indication: HYPERTENSION
     Dosage: 20 MG DAILY
     Route: 048
     Dates: start: 20060101

REACTIONS (4)
  - BONE DISORDER [None]
  - MEDICAL DEVICE COMPLICATION [None]
  - OSTEONECROSIS [None]
  - OSTEOTOMY [None]
